FAERS Safety Report 25599260 (Version 1)
Quarter: 2025Q3

REPORT INFORMATION
  Report Type: Spontaneous
  Country: US (occurrence: US)
  Receive Date: 20250724
  Receipt Date: 20250724
  Transmission Date: 20251020
  Serious: No
  Sender: TEVA
  Company Number: US-TEVA-VS-3353654

PATIENT
  Age: 71 Year
  Sex: Male

DRUGS (1)
  1. TRAZODONE HYDROCHLORIDE [Suspect]
     Active Substance: TRAZODONE HYDROCHLORIDE
     Indication: Sleep disorder
     Route: 048

REACTIONS (4)
  - Withdrawal syndrome [Unknown]
  - Adverse event [Unknown]
  - Gastrointestinal disorder [Unknown]
  - Product prescribing issue [Unknown]
